FAERS Safety Report 4510361-0 (Version None)
Quarter: 2004Q4

REPORT INFORMATION
  Report Type: 
  Country: None (occurrence: None)
  Receive Date: 20041122
  Receipt Date: 20041115
  Transmission Date: 20050328
  Serious: Yes (Hospitalization)
  Sender: FDA-Public Use
  Company Number: 200212567BWH

PATIENT
  Age: 20 Year
  Sex: Male
  Weight: 75.6 kg

DRUGS (1)
  1. MOXIFLOXACIN IV (MOXIFLOXACIN) [Suspect]
     Indication: ABDOMINAL INFECTION
     Dosage: 400 MG, QD, INTRAVENOUS
     Route: 042
     Dates: start: 20010706, end: 20010713

REACTIONS (6)
  - DIARRHOEA [None]
  - DRUG INEFFECTIVE [None]
  - NAUSEA [None]
  - PURULENCE [None]
  - VOMITING [None]
  - WOUND INFECTION [None]
